FAERS Safety Report 7957477-4 (Version None)
Quarter: 2011Q4

REPORT INFORMATION
  Report Type: 
  Country: None (occurrence: None)
  Receive Date: 20111205
  Receipt Date: 20111129
  Transmission Date: 20120403
  Serious: Yes (Other)
  Sender: FDA-Public Use
  Company Number: BR-SANOFI-AVENTIS-2011SA078174

PATIENT
  Age: 46 Year
  Sex: Male

DRUGS (1)
  1. INDAPAMIDE [Suspect]
     Route: 048

REACTIONS (1)
  - BLOOD PRESSURE ABNORMAL [None]
